FAERS Safety Report 13100751 (Version 1)
Quarter: 2017Q1

REPORT INFORMATION
  Report Type: Report from Study
  Country: GB (occurrence: GB)
  Receive Date: 20170110
  Receipt Date: 20170110
  Transmission Date: 20170428
  Serious: Yes (Hospitalization, Other)
  Sender: FDA-Public Use
  Company Number: GB-TAKEDA-2016MPI001096

PATIENT
  Age: 72 Year
  Sex: Female
  Weight: 69 kg

DRUGS (26)
  1. VELCADE [Suspect]
     Active Substance: BORTEZOMIB
     Indication: PLASMA CELL MYELOMA
     Dosage: 2.15 MG, UNK
     Route: 058
     Dates: start: 20160202, end: 20160209
  2. DARATUMUMAB [Suspect]
     Active Substance: DARATUMUMAB
     Indication: PLASMA CELL MYELOMA
     Dosage: UNK
     Route: 042
  3. ACICLOVIR [Concomitant]
     Active Substance: ACYCLOVIR
     Indication: PROPHYLAXIS
     Dosage: 400 MG, QD
     Route: 048
     Dates: start: 20160215, end: 20160216
  4. ZANAMIVIR [Concomitant]
     Active Substance: ZANAMIVIR
     Indication: DYSPNOEA
     Dosage: 5 MG, QD
     Route: 055
     Dates: start: 20160216
  5. PHOSPHATE SANDOZ [Concomitant]
     Active Substance: SODIUM PHOSPHATE, MONOBASIC, ANHYDROUS
     Dosage: 1 DF, QD
     Route: 048
     Dates: start: 20160216, end: 20160216
  6. SEPTRIN [Concomitant]
     Active Substance: SULFAMETHOXAZOLE\TRIMETHOPRIM
     Indication: SEPSIS
     Dosage: 1 DF, QD
     Route: 048
     Dates: start: 20160216
  7. MEROPENEM. [Concomitant]
     Active Substance: MEROPENEM
     Indication: SEPSIS
     Dosage: 1 G, QD
     Route: 042
     Dates: start: 20160212, end: 20160212
  8. ALLOPURINOL. [Concomitant]
     Active Substance: ALLOPURINOL
     Indication: PROPHYLAXIS
     Dosage: 300 MG, QD
     Route: 048
     Dates: start: 20160216, end: 20160222
  9. TAZOCIN [Concomitant]
     Active Substance: PIPERACILLIN SODIUM\TAZOBACTAM SODIUM
     Dosage: 4.5 MG, BID
     Route: 042
     Dates: start: 20160212, end: 20160212
  10. GLUCOSE [Concomitant]
     Active Substance: DEXTROSE
     Indication: SEPSIS
     Dosage: 1000 ML, UNK
     Route: 042
     Dates: start: 20160213, end: 20160213
  11. MEROPENEM. [Concomitant]
     Active Substance: MEROPENEM
     Dosage: 1 G, BID
     Route: 042
     Dates: start: 20160217, end: 20160217
  12. CHLORPHENAMINE [Concomitant]
     Active Substance: CHLORPHENIRAMINE MALEATE
     Indication: RASH MACULAR
     Dosage: 4 MG, QD
     Route: 048
     Dates: start: 20160212, end: 20160212
  13. CITALOPRAM [Concomitant]
     Active Substance: CITALOPRAM HYDROBROMIDE
     Indication: BIPOLAR DISORDER
     Dosage: 20 MG, QD
     Route: 048
     Dates: start: 1995
  14. DALTEPARIN [Concomitant]
     Active Substance: DALTEPARIN
     Indication: THROMBOSIS PROPHYLAXIS
     Dosage: UNK, QD
     Route: 058
     Dates: start: 20160212, end: 20160213
  15. CHLORPHENAMINE [Concomitant]
     Active Substance: CHLORPHENIRAMINE MALEATE
     Indication: RASH
  16. MELPHALAN [Suspect]
     Active Substance: MELPHALAN
     Indication: PLASMA CELL MYELOMA
     Dosage: 14 MG, UNK
     Route: 048
     Dates: start: 20160202
  17. PREDNISOLONE. [Suspect]
     Active Substance: PREDNISOLONE
     Indication: PLASMA CELL MYELOMA
     Dosage: 95 MG, UNK
     Route: 048
     Dates: start: 20160202
  18. TAZOCIN [Concomitant]
     Active Substance: PIPERACILLIN SODIUM\TAZOBACTAM SODIUM
     Indication: SEPSIS
     Dosage: 4.5 MG, UNK
     Route: 042
     Dates: start: 20160211, end: 20160211
  19. MEROPENEM. [Concomitant]
     Active Substance: MEROPENEM
     Dosage: 1 G, TID
     Route: 042
     Dates: start: 20160213, end: 20160216
  20. LITHIUM CARBONATE. [Concomitant]
     Active Substance: LITHIUM CARBONATE
     Indication: BIPOLAR DISORDER
     Dosage: 200 MG, QD
     Route: 048
     Dates: start: 1995
  21. PARACETAMOL [Concomitant]
     Active Substance: ACETAMINOPHEN
     Indication: SEPSIS
     Dosage: 1 G, UNK
     Route: 048
     Dates: start: 20160211
  22. PHOSPHATE SANDOZ [Concomitant]
     Active Substance: SODIUM PHOSPHATE, MONOBASIC, ANHYDROUS
     Indication: SEPSIS
     Dosage: 1 DF, BID
     Route: 048
     Dates: start: 20160215, end: 20160215
  23. VANCOMYCIN [Concomitant]
     Active Substance: VANCOMYCIN
     Dosage: 500 MG, BID
     Route: 042
     Dates: start: 20160217, end: 20160217
  24. ALENDRONIC ACID [Concomitant]
     Active Substance: ALENDRONIC ACID
     Indication: OSTEOPOROSIS
     Dosage: 70 MG, 1/WEEK
     Route: 048
     Dates: start: 1995, end: 20160213
  25. SODIUM CHLORIDE. [Concomitant]
     Active Substance: SODIUM CHLORIDE
     Indication: SEPSIS
     Dosage: 1000 ML, UNK
     Route: 042
     Dates: start: 20160211, end: 20160222
  26. VANCOMYCIN [Concomitant]
     Active Substance: VANCOMYCIN
     Indication: SEPSIS
     Dosage: 500 MG, UNK
     Route: 042
     Dates: start: 20160216, end: 20160216

REACTIONS (2)
  - Sepsis [Recovered/Resolved]
  - Delirium [Recovered/Resolved]

NARRATIVE: CASE EVENT DATE: 20160211
